FAERS Safety Report 9832799 (Version 2)
Quarter: 2015Q1

REPORT INFORMATION
  Report Type: Spontaneous
  Country: GB (occurrence: GB)
  Receive Date: 20140121
  Receipt Date: 20150203
  Transmission Date: 20150721
  Serious: Yes (Death, Hospitalization, Other)
  Sender: FDA-Public Use
  Company Number: GB-GLAXOSMITHKLINE-B0959759A

PATIENT

DRUGS (9)
  1. OMEPRAZOLE. [Concomitant]
     Active Substance: OMEPRAZOLE
  2. CYCLIZINE [Concomitant]
     Active Substance: CYCLIZINE
     Dosage: WHEN REQUIRED.
  3. RAMIPRIL. [Concomitant]
     Active Substance: RAMIPRIL
     Dosage: 5 MG, QD
  4. TOLTERODINE [Concomitant]
     Active Substance: TOLTERODINE
     Dosage: 4 MG, QD
  5. PAZOPANIB [Suspect]
     Active Substance: PAZOPANIB
     Indication: METASTATIC RENAL CELL CARCINOMA
     Route: 048
     Dates: start: 20131031, end: 20131230
  6. OMEPRAZOLE. [Concomitant]
     Active Substance: OMEPRAZOLE
  7. BISOPROLOL [Concomitant]
     Active Substance: BISOPROLOL
     Dosage: 1.25 MG, QD
     Route: 048
  8. TRAMADOL [Concomitant]
     Active Substance: TRAMADOL
  9. MELOXICAM. [Concomitant]
     Active Substance: MELOXICAM
     Dosage: 15 MG, QD

REACTIONS (7)
  - Acute kidney injury [Fatal]
  - Vomiting [Unknown]
  - Neutrophilia [Unknown]
  - Hypotension [Unknown]
  - Acidosis [Unknown]
  - Urine output decreased [Unknown]
  - Nausea [Unknown]

NARRATIVE: CASE EVENT DATE: 20131230
